FAERS Safety Report 16788473 (Version 1)
Quarter: 2019Q3

REPORT INFORMATION
  Report Type: Report from Study
  Country: None (occurrence: US)
  Receive Date: 20190910
  Receipt Date: 20190910
  Transmission Date: 20191005
  Serious: Yes (Other)
  Sender: FDA-Public Use
  Company Number: US-ABBVIE-19K-163-2911195-00

PATIENT
  Sex: Female

DRUGS (4)
  1. CALCIUM [Suspect]
     Active Substance: CALCIUM
     Indication: PRODUCT USED FOR UNKNOWN INDICATION
     Route: 065
  2. VITAMIN D [Suspect]
     Active Substance: VITAMIN D NOS
     Indication: PRODUCT USED FOR UNKNOWN INDICATION
     Route: 065
  3. HUMIRA [Suspect]
     Active Substance: ADALIMUMAB
     Indication: PSORIASIS
     Route: 058
  4. HUMIRA [Suspect]
     Active Substance: ADALIMUMAB
     Indication: PSORIATIC ARTHROPATHY

REACTIONS (12)
  - Bursitis [Unknown]
  - Anxiety [Recovered/Resolved]
  - Libido increased [Recovered/Resolved]
  - Seizure [Recovered/Resolved]
  - Vitamin D abnormal [Recovered/Resolved]
  - Malaise [Unknown]
  - Arthropathy [Recovered/Resolved]
  - Musculoskeletal disorder [Recovered/Resolved]
  - Joint instability [Unknown]
  - Blood test abnormal [Recovered/Resolved]
  - Vitamin D abnormal [Unknown]
  - Depression [Recovered/Resolved]
